FAERS Safety Report 10264272 (Version 1)
Quarter: 2014Q2

REPORT INFORMATION
  Report Type: Spontaneous
  Country: SE (occurrence: SE)
  Receive Date: 20140627
  Receipt Date: 20140627
  Transmission Date: 20141212
  Serious: Yes (Hospitalization)
  Sender: FDA-Public Use
  Company Number: SE-ASTRAZENECA-2014SE45354

PATIENT
  Age: 48 Year
  Sex: Female

DRUGS (6)
  1. SEROQUEL [Suspect]
     Dosage: EVER OTHER DAY
     Route: 048
  2. XANOR [Suspect]
     Dosage: EVER OTHER DAY
  3. NEUROLEPTICS [Concomitant]
  4. BENZODIAZEPINES [Concomitant]
  5. ANTIEPILEPTIC DRUGS [Concomitant]
  6. TRICYCLIC ANTIDEPRESSANTS [Concomitant]

REACTIONS (2)
  - Poisoning [Unknown]
  - Intentional self-injury [Unknown]
